FAERS Safety Report 4612908-2 (Version None)
Quarter: 2005Q1

REPORT INFORMATION
  Report Type: 
  Country: None (occurrence: None)
  Receive Date: 20050318
  Receipt Date: 20050311
  Transmission Date: 20050727
  Serious: Yes (Hospitalization)
  Sender: FDA-Public Use
  Company Number: JP-GLAXOSMITHKLINE-B0374699A

PATIENT
  Sex: Male

DRUGS (6)
  1. SEREVENT [Suspect]
     Indication: ASTHMA
     Route: 055
  2. FLUTICASONE PROPIONATE [Concomitant]
     Route: 055
  3. THEO-DUR [Concomitant]
     Route: 048
  4. ASPIRIN [Concomitant]
     Route: 048
  5. DOGMATYL [Concomitant]
     Route: 065
  6. ONON [Concomitant]
     Route: 048

REACTIONS (1)
  - BLOOD POTASSIUM DECREASED [None]
